FAERS Safety Report 8284888-2 (Version None)
Quarter: 2012Q2

REPORT INFORMATION
  Report Type: 
  Country: None (occurrence: None)
  Receive Date: 20120413
  Receipt Date: 20110912
  Transmission Date: 20120825
  Serious: No
  Sender: FDA-Public Use
  Company Number: US-ASTRAZENECA-2011SE36784

PATIENT
  Age: 50 Year
  Sex: Female

DRUGS (2)
  1. NEXIUM [Suspect]
     Route: 048
  2. EQUATE OTC [Concomitant]

REACTIONS (9)
  - OESOPHAGEAL FOOD IMPACTION [None]
  - DRUG DOSE OMISSION [None]
  - GASTROOESOPHAGEAL REFLUX DISEASE [None]
  - THROAT IRRITATION [None]
  - DYSPHAGIA [None]
  - DYSPEPSIA [None]
  - MALAISE [None]
  - OROPHARYNGEAL PAIN [None]
  - PLEURISY [None]
